FAERS Safety Report 5871799-2 (Version None)
Quarter: 2008Q3

REPORT INFORMATION
  Report Type: 
  Country: None (occurrence: None)
  Receive Date: 20080905
  Receipt Date: 20080826
  Transmission Date: 20090109
  Serious: Yes (Hospitalization)
  Sender: FDA-Public Use
  Company Number: BR-JNJFOC-20080806015

PATIENT
  Sex: Female
  Weight: 77 kg

DRUGS (10)
  1. REMICADE [Suspect]
     Route: 042
  2. REMICADE [Suspect]
     Dosage: 7 MONTHS
     Route: 042
  3. REMICADE [Suspect]
     Dosage: 7 MONTHS
     Route: 042
  4. REMICADE [Suspect]
     Dosage: 7 MONTHS
     Route: 042
  5. REMICADE [Suspect]
     Indication: RHEUMATOID ARTHRITIS
     Dosage: 7 MONTHS
     Route: 042
  6. AMITRIPTYLINE HCL [Concomitant]
     Indication: ANALGESIA
     Route: 048
  7. CARBAMAZEPINE [Concomitant]
     Indication: NEUROPATHY PERIPHERAL
     Route: 048
  8. METFORMIN HCL [Concomitant]
     Indication: DIABETES MELLITUS
     Route: 048
  9. IBUPROFEN [Concomitant]
     Indication: RHEUMATOID ARTHRITIS
     Route: 048
  10. METHOTREXATE [Concomitant]
     Indication: RHEUMATOID ARTHRITIS
     Route: 048

REACTIONS (1)
  - HERPES ZOSTER [None]
